FAERS Safety Report 4561858-9 (Version None)
Quarter: 2005Q1

REPORT INFORMATION
  Report Type: 
  Country: None (occurrence: None)
  Receive Date: 20050126
  Receipt Date: 20050113
  Transmission Date: 20050727
  Serious: Yes (Other)
  Sender: FDA-Public Use
  Company Number: US-MERCK-0501USA02752

PATIENT
  Age: 15 Year
  Sex: Male

DRUGS (2)
  1. ELSPAR [Suspect]
     Indication: NON-HODGKIN'S LYMPHOMA
     Route: 065
  2. ELSPAR [Suspect]
     Indication: METASTASES TO BONE MARROW
     Route: 065

REACTIONS (3)
  - PANCREAS INFECTION [None]
  - PANCREATIC NECROSIS [None]
  - PANCREATITIS [None]
